FAERS Safety Report 17639645 (Version 1)
Quarter: 2020Q2

REPORT INFORMATION
  Report Type: Spontaneous
  Country: CA (occurrence: CA)
  Receive Date: 20200407
  Receipt Date: 20200407
  Transmission Date: 20200713
  Serious: Yes (Death, Hospitalization, Other)
  Sender: FDA-Public Use
  Company Number: CA-SAMSUNG BIOEPIS-SB-2020-11232

PATIENT
  Age: 60 Year
  Sex: Female
  Weight: 64 kg

DRUGS (7)
  1. ACETAMINOPHEN. [Concomitant]
     Active Substance: ACETAMINOPHEN
     Indication: PREMEDICATION
     Route: 048
  2. DIMENHYDRINATE. [Concomitant]
     Active Substance: DIMENHYDRINATE
     Indication: PREMEDICATION
     Route: 048
  3. HYDROCORTISONE. [Concomitant]
     Active Substance: HYDROCORTISONE
     Indication: PREMEDICATION
     Route: 042
  4. INFLIXIMAB [Suspect]
     Active Substance: INFLIXIMAB
     Indication: CROHN^S DISEASE
     Route: 042
  5. AZATHIOPRINE. [Concomitant]
     Active Substance: AZATHIOPRINE
     Indication: PRODUCT USED FOR UNKNOWN INDICATION
     Route: 048
  6. DULOXETINE. [Concomitant]
     Active Substance: DULOXETINE
     Indication: PRODUCT USED FOR UNKNOWN INDICATION
     Route: 048
  7. VARICELLA ZOSTER VACCINE LIVE [Concomitant]
     Active Substance: VARICELLA-ZOSTER VIRUS STRAIN OKA/MERCK LIVE ANTIGEN
     Indication: IMMUNISATION
     Route: 065

REACTIONS (28)
  - Abdominal pain [Fatal]
  - Asthenia [Fatal]
  - Feeling hot [Fatal]
  - Insomnia [Fatal]
  - Intestinal haemorrhage [Fatal]
  - Lymphocyte count decreased [Fatal]
  - Wheezing [Fatal]
  - Muscle spasms [Fatal]
  - Nausea [Fatal]
  - Red cell distribution width increased [Fatal]
  - Prescribed overdose [Fatal]
  - Neutrophil count increased [Fatal]
  - Palpitations [Fatal]
  - Chest discomfort [Fatal]
  - Chest pain [Fatal]
  - Gastrooesophageal reflux disease [Fatal]
  - Pallor [Fatal]
  - Death [Fatal]
  - Abdominal pain upper [Fatal]
  - Constipation [Fatal]
  - Diarrhoea [Fatal]
  - Vomiting [Fatal]
  - Dizziness [Fatal]
  - Headache [Fatal]
  - Intestinal obstruction [Fatal]
  - Inappropriate schedule of product administration [Fatal]
  - Abdominal mass [Fatal]
  - Blood pressure fluctuation [Fatal]
